FAERS Safety Report 4959526-4 (Version None)
Quarter: 2006Q1

REPORT INFORMATION
  Report Type: 
  Country: None (occurrence: None)
  Receive Date: 20060331
  Receipt Date: 20060325
  Transmission Date: 20060701
  Serious: Yes (Hospitalization)
  Sender: FDA-Public Use
  Company Number: CEATOX N 3935

PATIENT
  Age: 33 Year
  Sex: Female

DRUGS (4)
  1. AEROLIN [Suspect]
     Indication: SUICIDE ATTEMPT
     Dosage: 40MG SINGLE DOSE
     Route: 048
     Dates: start: 20060325
  2. DIPYRONE INJ [Suspect]
     Indication: SUICIDE ATTEMPT
  3. TPN [Suspect]
     Indication: SUICIDE ATTEMPT
  4. VITAMIN [Suspect]
     Indication: SUICIDE ATTEMPT

REACTIONS (3)
  - OVERDOSE [None]
  - SUICIDE ATTEMPT [None]
  - TACHYCARDIA [None]
